FAERS Safety Report 8310244-4 (Version None)
Quarter: 2012Q2

REPORT INFORMATION
  Report Type: 
  Country: None (occurrence: None)
  Receive Date: 20120425
  Receipt Date: 20120417
  Transmission Date: 20120825
  Serious: Yes (Other)
  Sender: FDA-Public Use
  Company Number: JP-TEVA-334774ISR

PATIENT
  Sex: Male

DRUGS (2)
  1. PREDONINE,TAB,5MG [Concomitant]
     Indication: ANTIINFLAMMATORY THERAPY
     Dosage: 20 MILLIGRAM;
     Route: 048
     Dates: start: 20120411
  2. FAMOTIDINE [Suspect]
     Indication: PROPHYLAXIS AGAINST GASTROINTESTINAL ULCER
     Dosage: 40 MILLIGRAM;
     Route: 048
     Dates: start: 20120411

REACTIONS (1)
  - ECZEMA [None]
